FAERS Safety Report 6590276-7 (Version None)
Quarter: 2010Q1

REPORT INFORMATION
  Report Type: 
  Country: None (occurrence: None)
  Receive Date: 20100219
  Receipt Date: 20100209
  Transmission Date: 20100710
  Serious: Yes (Hospitalization)
  Sender: FDA-Public Use
  Company Number: PHHY2010NZ07711

PATIENT
  Sex: Female

DRUGS (6)
  1. CLOZARIL [Suspect]
     Indication: SCHIZOPHRENIA
     Dosage: 275 MG, UNK
     Route: 048
  2. INSULIN [Concomitant]
     Dosage: HUMALOG 40U MARNE, 20ML NOCTE
  3. METFORMIN HCL [Concomitant]
     Dosage: 1 G, TID
  4. PANTOPRAZOLE [Concomitant]
     Dosage: 40
  5. SIMVASTATIN [Concomitant]
     Dosage: 10MG/HS
  6. FERROUS SULFATE TAB [Concomitant]
     Dosage: 325 MG, UNK

REACTIONS (1)
  - ARTHROPATHY [None]
